FAERS Safety Report 6405235-4 (Version None)
Quarter: 2009Q4

REPORT INFORMATION
  Report Type: 
  Country: None (occurrence: None)
  Receive Date: 20091016
  Receipt Date: 20091016
  Transmission Date: 20100525
  Serious: Yes (Hospitalization)
  Sender: FDA-Public Use
  Company Number: None

PATIENT
  Age: 60 Year
  Sex: Female
  Weight: 88.905 kg

DRUGS (2)
  1. KINEVAC [Suspect]
     Dosage: 0.9MG IVPB ONCE
     Route: 042
     Dates: start: 20091015
  2. CHOLETEC [Concomitant]

REACTIONS (2)
  - HYPOAESTHESIA FACIAL [None]
  - HYPOAESTHESIA ORAL [None]
